FAERS Safety Report 26138872 (Version 1)
Quarter: 2025Q4

REPORT INFORMATION
  Report Type: Spontaneous
  Country: US (occurrence: None)
  Receive Date: 20251210
  Receipt Date: 20251210
  Transmission Date: 20260118
  Serious: No
  Sender: ALEXION PHARMACEUTICALS
  Company Number: US-PROCTER+GAMBLE-PH25020703

PATIENT

DRUGS (2)
  1. PRILOSEC OTC [Interacting]
     Active Substance: OMEPRAZOLE MAGNESIUM
     Dosage: TAKING IT FOR 20 YEARS
  2. UNSPECIFIED INGREDIENT [Interacting]
     Active Substance: UNSPECIFIED INGREDIENT
     Dosage: TOOK IT YEAR AGO

REACTIONS (3)
  - Blood pressure increased [Unknown]
  - Vaccine interaction [Unknown]
  - Drug effective for unapproved indication [Unknown]

NARRATIVE: CASE EVENT DATE: 20050101
